FAERS Safety Report 10022771 (Version 1)
Quarter: 2014Q1

REPORT INFORMATION
  Report Type: Spontaneous
  Country: FR (occurrence: FR)
  Receive Date: 20140319
  Receipt Date: 20140319
  Transmission Date: 20141002
  Serious: Yes (Hospitalization)
  Sender: FDA-Public Use
  Company Number: FR-PFIZER INC-2014077774

PATIENT
  Age: 61 Year
  Sex: Female

DRUGS (3)
  1. ORELOX [Suspect]
     Dosage: 200 MG, UNK
     Route: 048
     Dates: start: 20140221, end: 20140225
  2. BRONCHOKOD [Suspect]
     Dosage: 3 DF, DAILY
     Route: 048
     Dates: start: 20140221, end: 20140225
  3. DOLIPRANE [Suspect]
     Dosage: UNK
     Dates: start: 20140221, end: 20140225

REACTIONS (3)
  - Rash erythematous [Recovered/Resolved]
  - Oedema peripheral [Recovered/Resolved]
  - Blood creatine phosphokinase increased [Recovered/Resolved]
